FAERS Safety Report 13469927 (Version 1)
Quarter: 2017Q2

REPORT INFORMATION
  Report Type: Spontaneous
  Country: US (occurrence: US)
  Receive Date: 20170422
  Receipt Date: 20170422
  Transmission Date: 20170830
  Serious: No
  Sender: FDA-Public Use
  Company Number: US-STALLERGENES SAS-1065706

PATIENT
  Age: 12 Year
  Sex: Female

DRUGS (4)
  1. OLOPATADINE. [Concomitant]
     Active Substance: OLOPATADINE
  2. PAZEO [Concomitant]
     Active Substance: OLOPATADINE HYDROCHLORIDE
  3. ORALAIR [Suspect]
     Active Substance: ANTHOXANTHUM ODORATUM POLLEN\DACTYLIS GLOMERATA POLLEN\LOLIUM PERENNE POLLEN\PHLEUM PRATENSE POLLEN\POA PRATENSIS POLLEN
     Indication: SEASONAL ALLERGY
     Route: 060
  4. QNASL [Concomitant]
     Active Substance: BECLOMETHASONE DIPROPIONATE

REACTIONS (1)
  - Pruritus [Not Recovered/Not Resolved]
